FAERS Safety Report 11757341 (Version 1)
Quarter: 2015Q4

REPORT INFORMATION
  Report Type: Report from Study
  Country: HK (occurrence: HK)
  Receive Date: 20151120
  Receipt Date: 20151120
  Transmission Date: 20160304
  Serious: Yes (Death)
  Sender: FDA-Public Use
  Company Number: PHHY2015HK151714

PATIENT
  Sex: Female

DRUGS (2)
  1. TAFINLAR [Suspect]
     Active Substance: DABRAFENIB MESYLATE
     Indication: MALIGNANT MELANOMA
     Dosage: UNK UNK, BID
     Route: 048
     Dates: start: 2014
  2. MEKINIST [Suspect]
     Active Substance: TRAMETINIB DIMETHYL SULFOXIDE
     Indication: MALIGNANT MELANOMA
     Dosage: UNK
     Route: 048
     Dates: start: 2014

REACTIONS (1)
  - Gastrointestinal haemorrhage [Fatal]
